FAERS Safety Report 7375673-4 (Version None)
Quarter: 2011Q1

REPORT INFORMATION
  Report Type: 
  Country: None (occurrence: None)
  Receive Date: 20110325
  Receipt Date: 20110317
  Transmission Date: 20110831
  Serious: Yes (Other)
  Sender: FDA-Public Use
  Company Number: US-JNJFOC-20110308694

PATIENT
  Sex: Female

DRUGS (2)
  1. INVEGA [Suspect]
     Indication: SCHIZOAFFECTIVE DISORDER
     Route: 048
  2. EFFEXOR [Concomitant]
     Route: 065

REACTIONS (1)
  - VISUAL IMPAIRMENT [None]
